FAERS Safety Report 8822874 (Version 2)
Quarter: 2015Q2

REPORT INFORMATION
  Report Type: Report from Study
  Country: US (occurrence: US)
  Receive Date: 20121003
  Receipt Date: 20150624
  Transmission Date: 20150821
  Serious: Yes (Death)
  Sender: FDA-Public Use
  Company Number: US-ROCHE-1130945

PATIENT
  Sex: Male

DRUGS (30)
  1. BUDESONIDE. [Concomitant]
     Active Substance: BUDESONIDE
     Route: 048
  2. ARANESP [Concomitant]
     Active Substance: DARBEPOETIN ALFA
     Route: 058
  3. CALCIUM GLUCONATE. [Concomitant]
     Active Substance: CALCIUM GLUCONATE
     Route: 042
  4. VORICONAZOLE. [Concomitant]
     Active Substance: VORICONAZOLE
     Route: 048
  5. CELLCEPT [Concomitant]
     Active Substance: MYCOPHENOLATE MOFETIL\MYCOPHENOLATE MOFETIL HYDROCHLORIDE
     Route: 048
  6. TEQUIN [Concomitant]
     Active Substance: GATIFLOXACIN
  7. MAGNESIUM SULFATE. [Concomitant]
     Active Substance: MAGNESIUM SULFATE
     Route: 042
  8. DOXEPIN [Concomitant]
     Active Substance: DOXEPIN
     Route: 042
  9. RITUXAN [Suspect]
     Active Substance: RITUXIMAB
     Route: 042
     Dates: start: 20060216
  10. ACTIGALL [Concomitant]
     Active Substance: URSODIOL
     Route: 048
  11. DIPHENHYDRAMINE [Concomitant]
     Active Substance: DIPHENHYDRAMINE
     Route: 065
  12. FUROSEMIDE. [Concomitant]
     Active Substance: FUROSEMIDE
     Route: 042
  13. TYLENOL [Concomitant]
     Active Substance: ACETAMINOPHEN
     Route: 048
  14. GATIFLOXACIN. [Concomitant]
     Active Substance: GATIFLOXACIN
     Route: 048
  15. MEDROL [Concomitant]
     Active Substance: METHYLPREDNISOLONE
     Route: 048
  16. LIDEX SOLUTION [Concomitant]
     Route: 065
  17. TRIAMCINOLONE [Concomitant]
     Active Substance: TRIAMCINOLONE
     Route: 065
  18. DAPTOMYCIN. [Concomitant]
     Active Substance: DAPTOMYCIN
  19. OSCAL [Concomitant]
     Active Substance: CALCIUM CARBONATE
     Route: 065
  20. PROTONIX (UNITED STATES) [Concomitant]
     Route: 048
  21. RITUXAN [Suspect]
     Active Substance: RITUXIMAB
     Indication: CHRONIC LYMPHOCYTIC LEUKAEMIA
     Route: 042
     Dates: start: 20060213
  22. TACROLIMUS. [Concomitant]
     Active Substance: TACROLIMUS
     Route: 048
  23. TESTOSTERONE PATCH [Concomitant]
     Active Substance: TESTOSTERONE
     Route: 062
  24. PENTAMIDINE [Concomitant]
     Active Substance: PENTAMIDINE
     Route: 042
  25. CANCIDAS [Concomitant]
     Active Substance: CASPOFUNGIN ACETATE
  26. CEFEPIME [Concomitant]
     Active Substance: CEFEPIME\CEFEPIME HYDROCHLORIDE
  27. INFLIXIMAB [Concomitant]
     Active Substance: INFLIXIMAB
  28. PRIMAXIN [Concomitant]
     Active Substance: CILASTATIN SODIUM\IMIPENEM
  29. ATENOLOL. [Concomitant]
     Active Substance: ATENOLOL
     Route: 048
  30. FOSCARNET [Concomitant]
     Active Substance: FOSCARNET
     Route: 042

REACTIONS (18)
  - Off label use [Unknown]
  - Pleural effusion [Unknown]
  - Myopathy [Unknown]
  - Rash pruritic [Unknown]
  - Abdominal discomfort [Unknown]
  - Abdominal tenderness [Unknown]
  - Death [Fatal]
  - Pruritus [Unknown]
  - Skin exfoliation [Unknown]
  - Skin hyperpigmentation [Unknown]
  - Oedema [Unknown]
  - Fatigue [Unknown]
  - Skin hypopigmentation [Unknown]
  - Abdominal pain [Unknown]
  - Failure to thrive [Unknown]
  - Breath sounds abnormal [Unknown]
  - Dry skin [Unknown]
  - Muscular weakness [Unknown]
